FAERS Safety Report 18660331 (Version 1)
Quarter: 2020Q4

REPORT INFORMATION
  Report Type: Spontaneous
  Country: US (occurrence: US)
  Receive Date: 20201223
  Receipt Date: 20201223
  Transmission Date: 20210114
  Serious: Yes (Disabling)
  Sender: FDA-Public Use
  Company Number: None

PATIENT
  Age: 27 Year
  Sex: Male
  Weight: 87.75 kg

DRUGS (1)
  1. DEXTROAMPHET SACCHARAT, AMPHET ASPARTATE, DEXTROAMPHET SULFATE AND AMPHET SULFAT [Suspect]
     Active Substance: AMPHETAMINE ASPARTATE\AMPHETAMINE SULFATE\DEXTROAMPHETAMINE SACCHARATE\DEXTROAMPHETAMINE SULFATE
     Indication: ATTENTION DEFICIT HYPERACTIVITY DISORDER
     Route: 048
     Dates: start: 20170101, end: 20201206

REACTIONS (9)
  - Fatigue [None]
  - Pain [None]
  - Fibromyalgia [None]
  - Arthritis [None]
  - Anxiety [None]
  - Feeling abnormal [None]
  - Product substitution issue [None]
  - Poor quality product administered [None]
  - Quality of life decreased [None]

NARRATIVE: CASE EVENT DATE: 20201223
